FAERS Safety Report 8232810-7 (Version None)
Quarter: 2012Q1

REPORT INFORMATION
  Report Type: 
  Country: None (occurrence: None)
  Receive Date: 20120323
  Receipt Date: 20120319
  Transmission Date: 20120608
  Serious: Yes (Other)
  Sender: FDA-Public Use
  Company Number: US-AMGEN-USASP2011031352

PATIENT
  Age: 80 Year
  Sex: Female

DRUGS (9)
  1. PROLIA [Suspect]
     Indication: OSTEOPOROSIS POSTMENOPAUSAL
     Dosage: 1 UNK, Q6MO
     Dates: start: 20110413
  2. PROLIA [Suspect]
     Dates: start: 20110413
  3. VITAMINS                           /00067501/ [Concomitant]
  4. DIOVAN [Concomitant]
     Dosage: UNK MG, UNK
  5. ATENOLOL [Concomitant]
     Dosage: UNK MG, UNK
  6. OMEPRAZOLE [Concomitant]
     Dosage: UNK MG, UNK
  7. CITRACAL [Concomitant]
  8. LIPITOR [Concomitant]
     Dosage: UNK MG, UNK
  9. TYLENOL [Concomitant]

REACTIONS (3)
  - HYPOAESTHESIA [None]
  - ORAL DISCOMFORT [None]
  - PAIN IN EXTREMITY [None]
